FAERS Safety Report 9657868 (Version 1)
Quarter: 2013Q4

REPORT INFORMATION
  Report Type: Spontaneous
  Country: JP (occurrence: None)
  Receive Date: 20131029
  Receipt Date: 20131029
  Transmission Date: 20140711
  Serious: Yes (Hospitalization)
  Sender: FDA-Public Use
  Company Number: DSJ-2013-22843

PATIENT
  Age: 77 Year
  Sex: Female

DRUGS (11)
  1. OLMETEC [Suspect]
     Indication: ESSENTIAL HYPERTENSION
     Route: 048
     Dates: start: 20121110, end: 20130109
  2. ZANTAC [Suspect]
     Indication: GASTRITIS PROPHYLAXIS
     Route: 048
     Dates: start: 20130107, end: 20130110
  3. RINPRAL [Suspect]
     Indication: MUSCULOSKELETAL STIFFNESS
     Dosage: UNKNOWN, PER ORAL
     Route: 048
     Dates: start: 20121229, end: 20130106
  4. KIPRES (MONTELUKAST SODIUM) (MONTELUKAST SODIUM) [Concomitant]
  5. MOHRUS TAPE (KETOPROFEN) (POULTICE OR PATCH) (KETOPROFEN) [Concomitant]
  6. LOXONIN (LOXOPROFEN SODIUM) (LOXOPROFEN SODIUM) [Concomitant]
  7. ZYLORIC (ALLOPURINOL) (ALLOPURINOL) [Concomitant]
  8. BAKTAR (SULFAMETHOXAZOLE, TRIMETHROPRIM) [Concomitant]
  9. BONALON (ALONDRONIC ACID) (ALENDRONIC ACID) [Concomitant]
  10. AFAROL (ALFACALCIDOL) (ALFACALIDOL) [Concomitant]
  11. NORVASC OD (AMLODIPINE BESILATE) (AMLODIPINE BESILATE) [Concomitant]

REACTIONS (10)
  - Extraskeletal ossification [None]
  - Musculoskeletal stiffness [None]
  - Headache [None]
  - Diarrhoea [None]
  - Choking sensation [None]
  - Henoch-Schonlein purpura nephritis [None]
  - Bladder cancer [None]
  - Gastrointestinal haemorrhage [None]
  - Urinary retention [None]
  - Dialysis [None]
